FAERS Safety Report 6855673-0 (Version None)
Quarter: 2010Q3

REPORT INFORMATION
  Report Type: 
  Country: None (occurrence: None)
  Receive Date: 20100719
  Receipt Date: 20100507
  Transmission Date: 20110219
  Serious: No
  Sender: FDA-Public Use
  Company Number: US-KINGPHARMUSA00001-K201000582

PATIENT
  Age: 70 Year
  Sex: Female
  Weight: 97.506 kg

DRUGS (4)
  1. LEVOXYL [Suspect]
     Indication: HYPOTHYROIDISM
     Dosage: 100 MCG, QD
     Route: 048
  2. FOLIC ACID [Concomitant]
     Dosage: UNK
  3. OMEPRAZOLE [Concomitant]
     Indication: DYSPEPSIA
     Dosage: 20 MG, QD
  4. FOSINOPRIL W/HYDROCHLOROTHIAZIDE [Concomitant]
     Indication: HYPERTENSION
     Dosage: 10 MG, QD

REACTIONS (4)
  - CHOKING [None]
  - DYSGEUSIA [None]
  - FOREIGN BODY [None]
  - RETCHING [None]
